FAERS Safety Report 7151212-8 (Version None)
Quarter: 2010Q4

REPORT INFORMATION
  Report Type: 
  Country: None (occurrence: None)
  Receive Date: 20101210
  Receipt Date: 20101209
  Transmission Date: 20110411
  Serious: Yes (Hospitalization)
  Sender: FDA-Public Use
  Company Number: US-AMGEN-USACT2010008322

PATIENT

DRUGS (3)
  1. PANITUMUMAB [Suspect]
     Indication: OESOPHAGEAL ADENOCARCINOMA
     Dosage: UNK
     Dates: start: 20101004
  2. CISPLATIN [Suspect]
     Dosage: UNK
     Dates: start: 20101004
  3. DOCETAXEL [Suspect]
     Dosage: UNK
     Dates: start: 20101004

REACTIONS (5)
  - HYPOMAGNESAEMIA [None]
  - NAUSEA [None]
  - PULMONARY EMBOLISM [None]
  - SYNCOPE [None]
  - VOMITING [None]
